FAERS Safety Report 10695002 (Version 2)
Quarter: 2015Q2

REPORT INFORMATION
  Report Type: Report from Study
  Country: US (occurrence: US)
  Receive Date: 20150107
  Receipt Date: 20150420
  Transmission Date: 20150821
  Serious: Yes (Hospitalization, Other)
  Sender: FDA-Public Use
  Company Number: US-SA-2015SA000995

PATIENT
  Age: 60 Year
  Sex: Female

DRUGS (1)
  1. LANTUS [Suspect]
     Active Substance: INSULIN GLARGINE
     Indication: DIABETES MELLITUS
     Dosage: DOSE:108 UNIT(S)
     Route: 065
     Dates: start: 2013

REACTIONS (3)
  - Knee arthroplasty [Unknown]
  - Post procedural infection [Unknown]
  - Bone disorder [Unknown]

NARRATIVE: CASE EVENT DATE: 2014
